FAERS Safety Report 7829434-X (Version None)
Quarter: 2011Q4

REPORT INFORMATION
  Report Type: 
  Country: None (occurrence: None)
  Receive Date: 20111020
  Receipt Date: 20111007
  Transmission Date: 20120403
  Serious: Yes (Hospitalization)
  Sender: FDA-Public Use
  Company Number: US-JUTA GMBH-2011-16536

PATIENT
  Age: 69 Year
  Sex: Male

DRUGS (2)
  1. SIMVASTATIN [Suspect]
     Indication: PRODUCT USED FOR UNKNOWN INDICATION
     Dosage: 40 MG, DAILY
  2. DAPTOMYCIN [Suspect]
     Indication: EVIDENCE BASED TREATMENT
     Dosage: 900 MG, DAILY (8 MG/KG WITH WEIGTH OF 133 KG)
     Route: 042

REACTIONS (2)
  - RHABDOMYOLYSIS [None]
  - POTENTIATING DRUG INTERACTION [None]
